FAERS Safety Report 5368893-1 (Version None)
Quarter: 2007Q2

REPORT INFORMATION
  Report Type: 
  Country: None (occurrence: None)
  Receive Date: 20070625
  Receipt Date: 20061107
  Transmission Date: 20071010
  Serious: No
  Sender: FDA-Public Use
  Company Number: US-ASTRAZENECA-2006UW22140

PATIENT
  Age: 55 Year
  Sex: Female
  Weight: 84.8 kg

DRUGS (7)
  1. CRESTOR [Suspect]
     Indication: HYPERCHOLESTEROLAEMIA
     Route: 048
     Dates: start: 20061106
  2. SERTRALINE HYDROCHLORIDE [Concomitant]
     Route: 048
     Dates: start: 20061106
  3. CLOMIPRAMINE HCL [Concomitant]
  4. RHINOCORT [Concomitant]
     Route: 045
  5. MULTIVITAMIN [Concomitant]
  6. IBUPROFEN [Concomitant]
  7. LEVOXYL [Concomitant]

REACTIONS (1)
  - ABNORMAL DREAMS [None]
